FAERS Safety Report 14901757 (Version 1)
Quarter: 2018Q2

REPORT INFORMATION
  Report Type: Spontaneous
  Country: US (occurrence: US)
  Receive Date: 20180430
  Receipt Date: 20180430
  Transmission Date: 20180711
  Serious: Yes (Other)
  Sender: FDA-Public Use
  Company Number: None

PATIENT
  Age: 72 Year
  Sex: Female
  Weight: 63 kg

DRUGS (3)
  1. CEPHALEXIN. [Suspect]
     Active Substance: CEPHALEXIN
  2. CEPHALEXIN. [Concomitant]
     Active Substance: CEPHALEXIN
     Dates: start: 20180413, end: 20180420
  3. CEPHALEXIN. [Concomitant]
     Active Substance: CEPHALEXIN

REACTIONS (1)
  - Tendonitis [None]

NARRATIVE: CASE EVENT DATE: 20180428
